FAERS Safety Report 8757322 (Version 1)
Quarter: 2012Q4

REPORT INFORMATION
  Report Type: 
  Country: US (occurrence: US)
  Receive Date: 20120828
  Receipt Date: 20120828
  Transmission Date: 20130627
  Serious: Yes (Hospitalization)
  Sender: FDA-Public Use
  Company Number: US-BAYER-2012-086655

PATIENT
  Age: 27 Year
  Sex: Female

DRUGS (2)
  1. YASMIN [Suspect]
     Indication: ORAL CONTRACEPTION
  2. PERCOCET [Concomitant]

REACTIONS (1)
  - Deep vein thrombosis [Recovered/Resolved]
